FAERS Safety Report 24936475 (Version 1)
Quarter: 2025Q1

REPORT INFORMATION
  Report Type: Spontaneous
  Country: FR (occurrence: FR)
  Receive Date: 20250206
  Receipt Date: 20250206
  Transmission Date: 20250409
  Serious: Yes (Hospitalization)
  Sender: RANBAXY
  Company Number: FR-SUN PHARMACEUTICAL INDUSTRIES LTD-2025RR-492841

PATIENT
  Age: 75 Year
  Sex: Male
  Weight: 86 kg

DRUGS (5)
  1. ERTAPENEM [Suspect]
     Active Substance: ERTAPENEM
     Indication: Sepsis
     Dosage: 1000 MILLIGRAM, DAILY
     Route: 040
     Dates: start: 20241115, end: 20241122
  2. TEICOPLANIN [Suspect]
     Active Substance: TEICOPLANIN
     Indication: Sepsis
     Dosage: 700 MILLIGRAM, DAILY
     Route: 040
     Dates: start: 20241113, end: 20241122
  3. MEROPENEM [Concomitant]
     Active Substance: MEROPENEM
     Indication: Product used for unknown indication
     Route: 065
     Dates: start: 20241104, end: 20241115
  4. LINEZOLID [Concomitant]
     Active Substance: LINEZOLID
     Indication: Product used for unknown indication
     Route: 065
     Dates: start: 20241101, end: 20241113
  5. PIPERACILLIN SODIUM\TAZOBACTAM SODIUM [Concomitant]
     Active Substance: PIPERACILLIN SODIUM\TAZOBACTAM SODIUM
     Indication: Product used for unknown indication
     Route: 065
     Dates: start: 20241101, end: 20241104

REACTIONS (1)
  - Acute generalised exanthematous pustulosis [Recovering/Resolving]

NARRATIVE: CASE EVENT DATE: 20241119
